FAERS Safety Report 23945149 (Version 3)
Quarter: 2024Q2

REPORT INFORMATION
  Report Type: Spontaneous
  Country: RO (occurrence: RO)
  Receive Date: 20240606
  Receipt Date: 20240614
  Transmission Date: 20240716
  Serious: Yes (Hospitalization, Other)
  Sender: FDA-Public Use
  Company Number: RO-SA-2024SA155047

PATIENT
  Age: 32 Year
  Sex: Male

DRUGS (8)
  1. DOCETAXEL [Suspect]
     Active Substance: DOCETAXEL\DOCETAXEL ANHYDROUS
     Indication: Mucoepidermoid carcinoma of salivary gland
     Dosage: 100 MILLIGRAM/SQ. METER, CYCLE (QCY)
     Route: 065
     Dates: start: 2013
  2. DOCETAXEL [Suspect]
     Active Substance: DOCETAXEL\DOCETAXEL ANHYDROUS
     Indication: Salivary gland cancer stage IV
     Dosage: 100 MILLIGRAM/SQ. METER, CYCLE (QCY)
     Route: 065
  3. DOCETAXEL [Suspect]
     Active Substance: DOCETAXEL\DOCETAXEL ANHYDROUS
     Indication: Chemotherapy
  4. CISPLATIN [Suspect]
     Active Substance: CISPLATIN
     Indication: Salivary gland cancer stage IV
     Dosage: 40 MILLIGRAM/SQ. METER, CYCLE (QCY)
     Route: 065
     Dates: start: 2013
  5. CISPLATIN [Suspect]
     Active Substance: CISPLATIN
     Indication: Mucoepidermoid carcinoma of salivary gland
     Dosage: 40 MILLIGRAM/SQ. METER, CYCLE (QCY)
     Route: 065
  6. CISPLATIN [Suspect]
     Active Substance: CISPLATIN
     Indication: Chemotherapy
  7. OMEPRAZOLE [Suspect]
     Active Substance: DONEPEZIL HYDROCHLORIDE\OMEPRAZOLE\OMEPRAZOLE MAGNESIUM
     Indication: Gastrooesophageal reflux disease
     Dosage: 20 MILLIGRAM, QD (20 MILLIGRAM, DAILY)
     Route: 065
     Dates: start: 2020
  8. OMEPRAZOLE [Suspect]
     Active Substance: DONEPEZIL HYDROCHLORIDE\OMEPRAZOLE\OMEPRAZOLE MAGNESIUM
     Indication: Gastritis

REACTIONS (18)
  - Arterial occlusive disease [Recovering/Resolving]
  - Left ventricular dilatation [Recovering/Resolving]
  - Mitral valve incompetence [Recovering/Resolving]
  - Tricuspid valve incompetence [Recovering/Resolving]
  - Hepatic cytolysis [Recovering/Resolving]
  - Myocardial necrosis [Recovering/Resolving]
  - Acute coronary syndrome [Unknown]
  - Ventricular hypokinesia [Recovering/Resolving]
  - Systolic dysfunction [Recovering/Resolving]
  - Thrombolysis [Recovering/Resolving]
  - Gastrooesophageal reflux disease [Unknown]
  - Gastritis [Unknown]
  - Acute myocardial infarction [Unknown]
  - Cardiac failure congestive [Recovering/Resolving]
  - Abdominal pain upper [Unknown]
  - Nausea [Unknown]
  - Vomiting [Unknown]
  - Off label use [Unknown]

NARRATIVE: CASE EVENT DATE: 20200101
